FAERS Safety Report 24178216 (Version 1)
Quarter: 2024Q3

REPORT INFORMATION
  Report Type: Spontaneous
  Country: ES (occurrence: ES)
  Receive Date: 20240806
  Receipt Date: 20240806
  Transmission Date: 20241016
  Serious: Yes (Hospitalization)
  Sender: AUROBINDO
  Company Number: ES-AEMPS-1553737

PATIENT
  Age: 76 Year
  Sex: Female

DRUGS (2)
  1. FUROSEMIDE [Interacting]
     Active Substance: FUROSEMIDE
     Indication: Oedema peripheral
     Dosage: UNK
     Route: 048
     Dates: start: 202402, end: 20240304
  2. ENALAPRIL\HYDROCHLOROTHIAZIDE [Interacting]
     Active Substance: ENALAPRIL\HYDROCHLOROTHIAZIDE
     Indication: Hypertension
     Dosage: 1 DOSAGE FORM, ONCE A DAY(28 TABLETS)
     Route: 048
     Dates: start: 20231120, end: 20240305

REACTIONS (1)
  - Hyponatraemia [Recovered/Resolved]

NARRATIVE: CASE EVENT DATE: 20240304
